FAERS Safety Report 12641079 (Version 1)
Quarter: 2016Q3

REPORT INFORMATION
  Report Type: Spontaneous
  Country: US (occurrence: US)
  Receive Date: 20160810
  Receipt Date: 20160810
  Transmission Date: 20161109
  Serious: Yes (Other)
  Sender: FDA-Public Use
  Company Number: US-BELCHER PHARMACEUTICALS, LLC-2016VTS00046

PATIENT
  Age: 49 Year
  Sex: Female
  Weight: 86.17 kg

DRUGS (2)
  1. HYOSCYAMINE SULFATE. [Suspect]
     Active Substance: HYOSCYAMINE SULFATE
     Dosage: UNK UNK, 6X/DAY
     Route: 048
     Dates: start: 20160603, end: 20160625
  2. HYDROCODONE [Concomitant]
     Active Substance: HYDROCODONE
     Indication: BACK PAIN

REACTIONS (12)
  - Hallucination [Recovered/Resolved]
  - Asthenia [Recovered/Resolved]
  - Amnesia [Not Recovered/Not Resolved]
  - Disorientation [Recovered/Resolved]
  - Speech disorder [Recovered/Resolved]
  - Dizziness [Recovered/Resolved]
  - Coordination abnormal [Recovered/Resolved]
  - Vision blurred [Recovered/Resolved]
  - Confusional state [Recovered/Resolved]
  - Dry mouth [Recovered/Resolved]
  - Balance disorder [Recovered/Resolved]
  - Pollakiuria [Recovered/Resolved]

NARRATIVE: CASE EVENT DATE: 20160625
